FAERS Safety Report 6225255-2 (Version None)
Quarter: 2009Q2

REPORT INFORMATION
  Report Type: 
  Country: None (occurrence: None)
  Receive Date: 20090612
  Receipt Date: 20090409
  Transmission Date: 20091009
  Serious: No
  Sender: FDA-Public Use
  Company Number: US-ABBOTT-09P-163-0567559-00

PATIENT
  Sex: Male
  Weight: 99.88 kg

DRUGS (3)
  1. HUMIRA [Suspect]
     Indication: PSORIASIS
     Route: 058
     Dates: start: 20081001
  2. ZOLOFT [Concomitant]
     Indication: ANXIETY
  3. CLOZAPINE [Concomitant]
     Indication: DRUG USE FOR UNKNOWN INDICATION

REACTIONS (3)
  - INFLUENZA [None]
  - OROPHARYNGEAL PAIN [None]
  - PSORIASIS [None]
